FAERS Safety Report 11187226 (Version 5)
Quarter: 2015Q3

REPORT INFORMATION
  Report Type: Spontaneous
  Country: US (occurrence: US)
  Receive Date: 20150615
  Receipt Date: 20150916
  Transmission Date: 20151125
  Serious: Yes (Hospitalization, Other)
  Sender: FDA-Public Use
  Company Number: US-JNJFOC-20150504855

PATIENT
  Age: 64 Year
  Sex: Female
  Weight: 107.94 kg

DRUGS (8)
  1. XARELTO [Suspect]
     Active Substance: RIVAROXABAN
     Indication: PRODUCT USED FOR UNKNOWN INDICATION
     Route: 048
  2. ADEMPAS [Suspect]
     Active Substance: RIOCIGUAT
     Indication: PULMONARY HYPERTENSION
     Route: 048
  3. ADEMPAS [Suspect]
     Active Substance: RIOCIGUAT
     Indication: COR PULMONALE
     Route: 048
  4. VENTAVIS [Suspect]
     Active Substance: ILOPROST
     Indication: PRODUCT USED FOR UNKNOWN INDICATION
     Route: 065
  5. ADEMPAS [Suspect]
     Active Substance: RIOCIGUAT
     Indication: PULMONARY HYPERTENSION
     Route: 048
  6. ADEMPAS [Suspect]
     Active Substance: RIOCIGUAT
     Indication: PULMONARY HYPERTENSION
     Route: 048
     Dates: start: 20150403
  7. ADEMPAS [Suspect]
     Active Substance: RIOCIGUAT
     Indication: COR PULMONALE
     Route: 048
  8. ADEMPAS [Suspect]
     Active Substance: RIOCIGUAT
     Indication: COR PULMONALE
     Route: 048
     Dates: start: 20150403

REACTIONS (10)
  - Gallbladder disorder [Unknown]
  - Gingival bleeding [Unknown]
  - Gingival operation [Unknown]
  - Dizziness [Unknown]
  - Epistaxis [Unknown]
  - Sinusitis [Unknown]
  - Cholelithiasis [Unknown]
  - Paraesthesia oral [Unknown]
  - Mouth haemorrhage [Unknown]
  - Cough [Unknown]

NARRATIVE: CASE EVENT DATE: 20150625
